FAERS Safety Report 24831361 (Version 1)
Quarter: 2025Q1

REPORT INFORMATION
  Report Type: Spontaneous
  Country: US (occurrence: None)
  Receive Date: 20250110
  Receipt Date: 20250110
  Transmission Date: 20250408
  Serious: No
  Sender: FDA-CTU
  Company Number: None

PATIENT

DRUGS (1)
  1. COPAXONE [Suspect]
     Active Substance: GLATIRAMER ACETATE

REACTIONS (15)
  - Multiple sclerosis relapse [None]
  - Loss of personal independence in daily activities [None]
  - Speech disorder [None]
  - Memory impairment [None]
  - Aphasia [None]
  - Disturbance in attention [None]
  - Crying [None]
  - Depressed mood [None]
  - Fatigue [None]
  - Asthenia [None]
  - Nephrolithiasis [None]
  - Uterine enlargement [None]
  - Decreased appetite [None]
  - Nerve compression [None]
  - Therapy interrupted [None]
